FAERS Safety Report 7069653-6 (Version None)
Quarter: 2010Q4

REPORT INFORMATION
  Report Type: 
  Country: None (occurrence: None)
  Receive Date: 20101028
  Receipt Date: 20100511
  Transmission Date: 20110411
  Serious: No
  Sender: FDA-Public Use
  Company Number: US-WYE-H14366810

PATIENT
  Age: 78 Year
  Sex: Male

DRUGS (5)
  1. EFFEXOR [Suspect]
     Indication: IRRITABILITY
     Dosage: UNKNOWN
  2. FLOMAX [Concomitant]
  3. CRESTOR [Concomitant]
  4. CASODEX [Concomitant]
  5. ACETYLSALICYLIC ACID [Concomitant]

REACTIONS (1)
  - DRUG INEFFECTIVE [None]
